FAERS Safety Report 7786985-4 (Version None)
Quarter: 2011Q3

REPORT INFORMATION
  Report Type: 
  Country: None (occurrence: None)
  Receive Date: 20110929
  Receipt Date: 20110927
  Transmission Date: 20111222
  Serious: Yes (Other)
  Sender: FDA-Public Use
  Company Number: US-PFIZER INC-2011230198

PATIENT
  Sex: Female

DRUGS (2)
  1. IBUPROFEN (ADVIL) [Suspect]
     Indication: PAIN IN EXTREMITY
  2. TYLENOL-500 [Concomitant]
     Indication: PAIN IN EXTREMITY
     Dosage: UNK

REACTIONS (1)
  - ULCER [None]
